FAERS Safety Report 7050977 (Version 1)
Quarter: 2020Q3

REPORT INFORMATION
  Report Type: Report from Study
  Country: BE (occurrence: BE)
  Receive Date: 20090715
  Receipt Date: 20090715
  Transmission Date: 20201104
  Serious: Yes (Hospitalization)
  Sender: FDA-Public Use
  Company Number: BE-WYE-H09903709

PATIENT
  Age: 74 Year
  Sex: Female
  Weight: 75.5 kg

DRUGS (7)
  1. UNSPECIFIED INGREDIENT [Suspect]
     Active Substance: UNSPECIFIED INGREDIENT
     Route: 048
     Dates: start: 20090703
  2. MAGNESIUM [Concomitant]
     Active Substance: MAGNESIUM
     Indication: MUSCLE SPASMS
     Dosage: NOT PROVIDED
     Route: 065
     Dates: start: 20090430
  3. PACLITAXEL. [Suspect]
     Active Substance: PACLITAXEL
     Indication: BREAST CANCER
     Dosage: 80 MG/M^2 W1?2?3
     Route: 042
     Dates: start: 20081001, end: 20090625
  4. AMLODIPINE [Concomitant]
     Active Substance: AMLODIPINE BESYLATE
     Indication: HYPERTENSION
     Dosage: NOT PROVIDED
     Route: 065
     Dates: start: 20090121
  5. UNSPECIFIED INGREDIENT [Suspect]
     Active Substance: UNSPECIFIED INGREDIENT
     Indication: BREAST CANCER
     Route: 048
     Dates: start: 20081001, end: 20090625
  6. LOPERAMIDE [Concomitant]
     Active Substance: LOPERAMIDE
     Indication: DIARRHOEA
     Dosage: NOT PROVIDED
     Route: 065
     Dates: start: 20081001
  7. COLECALCIFEROL [Concomitant]
     Indication: METASTASES TO BONE
     Dosage: NOT PROVIDED
     Route: 065
     Dates: start: 20080912

REACTIONS (1)
  - Cellulitis [Recovered/Resolved]

NARRATIVE: CASE EVENT DATE: 20090626
